FAERS Safety Report 20988586 (Version 1)
Quarter: 2022Q2

REPORT INFORMATION
  Report Type: Spontaneous
  Country: JP (occurrence: JP)
  Receive Date: 20220621
  Receipt Date: 20220621
  Transmission Date: 20220721
  Serious: Yes (Hospitalization, Other)
  Sender: FDA-Public Use
  Company Number: JP-MSD-M2022-18813

PATIENT
  Age: 72 Year
  Sex: Female

DRUGS (3)
  1. KEYTRUDA [Suspect]
     Active Substance: PEMBROLIZUMAB
     Indication: Renal cell carcinoma stage III
     Dosage: 200 MILLIGRAM, Q3W
     Route: 041
     Dates: start: 20220420
  2. LENVATINIB MESYLATE [Suspect]
     Active Substance: LENVATINIB MESYLATE
     Indication: Renal cell carcinoma stage III
     Dosage: 20 MILLIGRAM, QD
     Route: 048
     Dates: start: 20220420, end: 2022
  3. CILNIDIPINE [Concomitant]
     Active Substance: CILNIDIPINE
     Dosage: UNK
     Route: 065

REACTIONS (11)
  - Duodenal ulcer [Recovering/Resolving]
  - Ascites [Unknown]
  - Hypothyroidism [Recovered/Resolved]
  - Nutritional condition abnormal [Unknown]
  - Hypertension [Recovered/Resolved]
  - Proteinuria [Unknown]
  - Fatigue [Not Recovered/Not Resolved]
  - Pleural effusion [Unknown]
  - Blood pressure systolic decreased [Unknown]
  - Decreased appetite [Unknown]
  - Blood albumin decreased [Unknown]

NARRATIVE: CASE EVENT DATE: 20220101
